FAERS Safety Report 12168622 (Version 1)
Quarter: 2016Q1

REPORT INFORMATION
  Report Type: Spontaneous
  Country: PL (occurrence: PL)
  Receive Date: 20160310
  Receipt Date: 20160310
  Transmission Date: 20160526
  Serious: Yes (Other)
  Sender: FDA-Public Use
  Company Number: PL-BAYER-2016-042003

PATIENT
  Age: 28 Year
  Sex: Female
  Weight: 58 kg

DRUGS (3)
  1. GADOVIST [Suspect]
     Active Substance: GADOBUTROL
     Indication: DIAGNOSTIC PROCEDURE
  2. DEXAVEN [Concomitant]
     Active Substance: DEXAMETHASONE
     Dosage: 4 MG, UNK
     Route: 042
  3. GADOVIST [Suspect]
     Active Substance: GADOBUTROL
     Indication: DIAGNOSTIC PROCEDURE
     Dosage: 5.8 ML, UNK
     Route: 042
     Dates: start: 20160126, end: 20160126

REACTIONS (2)
  - Conjunctival hyperaemia [Recovered/Resolved]
  - Eyelid oedema [Recovered/Resolved]

NARRATIVE: CASE EVENT DATE: 20160126
